FAERS Safety Report 10085621 (Version 1)
Quarter: 2014Q2

REPORT INFORMATION
  Report Type: Report from Study
  Country: US (occurrence: US)
  Receive Date: 20140418
  Receipt Date: 20140418
  Transmission Date: 20141212
  Serious: Yes (Other)
  Sender: FDA-Public Use
  Company Number: US-ROCHE-1386350

PATIENT
  Sex: 0

DRUGS (2)
  1. BEVACIZUMAB [Suspect]
     Indication: CENTRAL NERVOUS SYSTEM NEOPLASM
     Dosage: ON DAY 1
     Route: 042
  2. TEMSIROLIMUS [Suspect]
     Indication: CENTRAL NERVOUS SYSTEM NEOPLASM
     Dosage: ON DAYS 1, 8 AND 15
     Route: 042

REACTIONS (2)
  - Thrombocytopenia [Unknown]
  - Alanine aminotransferase increased [Unknown]
